FAERS Safety Report 16118136 (Version 8)
Quarter: 2021Q2

REPORT INFORMATION
  Report Type: Spontaneous
  Country: US (occurrence: US)
  Receive Date: 20190326
  Receipt Date: 20210628
  Transmission Date: 20210716
  Serious: Yes (Other)
  Sender: FDA-Public Use
  Company Number: US-ELI_LILLY_AND_COMPANY-US201903011584

PATIENT
  Age: 57 Year
  Sex: Female

DRUGS (13)
  1. BASAGLAR [Suspect]
     Active Substance: INSULIN GLARGINE
     Indication: DIABETES MELLITUS
     Dosage: 65 INTERNATIONAL UNIT, DAILY
     Route: 058
     Dates: start: 201811
  2. HUMALOG [Suspect]
     Active Substance: INSULIN LISPRO
     Dosage: 38 INTERNATIONAL UNIT, DAILY
     Route: 058
  3. BASAGLAR [Suspect]
     Active Substance: INSULIN GLARGINE
     Dosage: 65 INTERNATIONAL UNIT, DAILY
     Route: 058
  4. BASAGLAR [Suspect]
     Active Substance: INSULIN GLARGINE
     Dosage: 60 U, DAILY
     Route: 058
  5. TRULICITY [Suspect]
     Active Substance: DULAGLUTIDE
     Dosage: 1.5 MG, WEEKLY (1/W)
     Route: 058
  6. HUMALOG [Suspect]
     Active Substance: INSULIN LISPRO
     Dosage: 13 INTERNATIONAL UNIT, DAILY (DINNER)
     Route: 058
  7. HUMALOG [Suspect]
     Active Substance: INSULIN LISPRO
     Indication: PRODUCT USED FOR UNKNOWN INDICATION
     Dosage: UNK UNK, UNKNOWN
     Route: 065
     Dates: start: 201811
  8. HUMALOG [Suspect]
     Active Substance: INSULIN LISPRO
     Dosage: 38 U, DAILY
     Route: 065
  9. TRULICITY [Suspect]
     Active Substance: DULAGLUTIDE
     Indication: DIABETES MELLITUS
     Dosage: 1.5 MG, WEEKLY (1/W)
     Route: 058
     Dates: start: 201811
  10. HUMALOG [Suspect]
     Active Substance: INSULIN LISPRO
     Indication: DIABETES MELLITUS
     Dosage: 11 INTERNATIONAL UNIT, BID (BREAKFAST AND LUNCH)
     Route: 058
     Dates: start: 201811
  11. HUMALOG [Suspect]
     Active Substance: INSULIN LISPRO
     Dosage: 13 INTERNATIONAL UNIT, DAILY (DINNER)
     Route: 058
     Dates: start: 201811
  12. HUMALOG [Suspect]
     Active Substance: INSULIN LISPRO
     Dosage: 11 INTERNATIONAL UNIT, BID (BREAKFAST AND LUNCH)
     Route: 058
  13. HUMALOG [Suspect]
     Active Substance: INSULIN LISPRO
     Dosage: UNK UNK, UNKNOWN
     Route: 065
     Dates: start: 20210219

REACTIONS (20)
  - Delusion of parasitosis [Not Recovered/Not Resolved]
  - Feeling abnormal [Not Recovered/Not Resolved]
  - Memory impairment [Not Recovered/Not Resolved]
  - Infectious mononucleosis [Unknown]
  - Rocky mountain spotted fever [Unknown]
  - Fatigue [Not Recovered/Not Resolved]
  - Cerebral disorder [Unknown]
  - Mental impairment [Not Recovered/Not Resolved]
  - Visual impairment [Unknown]
  - Immunodeficiency [Unknown]
  - Large intestine infection [Unknown]
  - Stomatitis [Not Recovered/Not Resolved]
  - Lyme disease [Not Recovered/Not Resolved]
  - Fungal infection [Unknown]
  - Blood glucose increased [Not Recovered/Not Resolved]
  - Blood glucose increased [Unknown]
  - Sepsis [Unknown]
  - Human anaplasmosis [Unknown]
  - Bartonellosis [Unknown]
  - Lower limb fracture [Unknown]

NARRATIVE: CASE EVENT DATE: 20190513
